FAERS Safety Report 4927799-X (Version None)
Quarter: 2006Q1

REPORT INFORMATION
  Report Type: 
  Country: None (occurrence: None)
  Receive Date: 20060228
  Receipt Date: 20060217
  Transmission Date: 20060701
  Serious: Yes (Hospitalization)
  Sender: FDA-Public Use
  Company Number: FR-BRISTOL-MYERS SQUIBB COMPANY-13297163

PATIENT
  Age: 15 Year
  Sex: Female
  Weight: 64 kg

DRUGS (6)
  1. ENDOXAN [Suspect]
     Indication: CUTANEOUS LUPUS ERYTHEMATOSUS
     Route: 042
     Dates: start: 20051227, end: 20051227
  2. CORTANCYL [Concomitant]
     Indication: SYSTEMIC LUPUS ERYTHEMATOSUS
     Route: 048
     Dates: start: 19960315
  3. IMOVANE [Concomitant]
     Indication: SLEEP DISORDER
     Route: 048
     Dates: start: 20051203
  4. UROMITEXAN [Concomitant]
     Dates: start: 20051227, end: 20051228
  5. ZOPHREN [Concomitant]
     Dates: start: 20051227, end: 20051228
  6. CHRONADALATE [Concomitant]
     Indication: HYPERTENSION
     Route: 048
     Dates: start: 20051203

REACTIONS (9)
  - ABDOMINAL PAIN [None]
  - ARTHRALGIA [None]
  - DIARRHOEA [None]
  - MIDDLE INSOMNIA [None]
  - MYALGIA [None]
  - PAIN [None]
  - PYREXIA [None]
  - RASH ERYTHEMATOUS [None]
  - VOMITING [None]
